FAERS Safety Report 6396611-7 (Version None)
Quarter: 2009Q4

REPORT INFORMATION
  Report Type: 
  Country: None (occurrence: None)
  Receive Date: 20091012
  Receipt Date: 20090727
  Transmission Date: 20100525
  Serious: No
  Sender: FDA-Public Use
  Company Number: US-ASTRAZENECA-2009SE06111

PATIENT
  Sex: Female
  Weight: 70.3 kg

DRUGS (13)
  1. SYMBICORT [Suspect]
     Dosage: 160/4.5 MCG (2 PUFFS TWICE A DAY)
     Route: 055
  2. COMBIVENT [Concomitant]
  3. IPRATROPIUM BROMIDE [Concomitant]
  4. ALBUTEROL [Concomitant]
  5. BUMETANIDE [Concomitant]
  6. ISOSORBIDE [Concomitant]
  7. SPIRONOLACTONE [Concomitant]
  8. COZAAR [Concomitant]
  9. LIPITOR [Concomitant]
  10. PLAVIX [Concomitant]
  11. POTASSIUM CHLORIDE [Concomitant]
  12. NIFEREX [Concomitant]
  13. CODEINE [Concomitant]

REACTIONS (2)
  - DYSPNOEA [None]
  - MALAISE [None]
